FAERS Safety Report 20204082 (Version 1)
Quarter: 2021Q4

REPORT INFORMATION
  Report Type: Spontaneous
  Country: US (occurrence: US)
  Receive Date: 20211220
  Receipt Date: 20211220
  Transmission Date: 20220303
  Serious: Yes (Death, Other)
  Sender: FDA-Public Use
  Company Number: US-009507513-2112USA006023

PATIENT
  Age: 71 Year
  Sex: Female

DRUGS (4)
  1. PRINIVIL [Suspect]
     Active Substance: LISINOPRIL
     Dosage: ROUTE:INGESTION(INGST)
  2. OLANZAPINE [Suspect]
     Active Substance: OLANZAPINE
     Dosage: ROUTE:INGESTION(INGST)
  3. SERTRALINE [Suspect]
     Active Substance: SERTRALINE HYDROCHLORIDE
     Dosage: ROUTE:INGESTION(INGST)
  4. GABAPENTIN [Suspect]
     Active Substance: GABAPENTIN
     Dosage: ROUTE:INGESTION(INGST)

REACTIONS (1)
  - Suspected suicide [Fatal]
